FAERS Safety Report 5489983-9 (Version None)
Quarter: 2007Q4

REPORT INFORMATION
  Report Type: 
  Country: None (occurrence: None)
  Receive Date: 20071018
  Receipt Date: 20071010
  Transmission Date: 20080405
  Serious: Yes (Other)
  Sender: FDA-Public Use
  Company Number: FR-ROCHE-519207

PATIENT
  Age: 64 Year
  Sex: Male
  Weight: 82 kg

DRUGS (3)
  1. CAPECITABINE [Suspect]
     Dosage: ACCORDING TO PROTOCOL: 2000 MG/M2/DAY/14 DAYS
     Route: 048
     Dates: start: 20070109
  2. BEVACIZUMAB [Suspect]
     Dosage: ACCORDING TO PROTOCOL: 7.5 MG/KG EVERY 3 WEEKS
     Route: 042
     Dates: start: 20070109
  3. CAMPTOSAR [Suspect]
     Dosage: ACCORDING TO PROTOCOL: 90 MINUTE INFUSION 200 MG/M2 ON DAY 1 OF 21 DAY CYCLE.
     Route: 042
     Dates: start: 20070109

REACTIONS (1)
  - POLYCYTHAEMIA [None]
